FAERS Safety Report 6886195-9 (Version None)
Quarter: 2010Q3

REPORT INFORMATION
  Report Type: 
  Country: None (occurrence: None)
  Receive Date: 20100729
  Receipt Date: 20080328
  Transmission Date: 20110219
  Serious: Yes (Other)
  Sender: FDA-Public Use
  Company Number: US-PFIZER INC-2008028042

PATIENT
  Sex: Female
  Weight: 51.818 kg

DRUGS (4)
  1. CELEBREX [Suspect]
     Indication: OSTEOARTHRITIS
     Route: 048
     Dates: end: 20080101
  2. SYNTHROID [Concomitant]
  3. ASPIRIN [Concomitant]
  4. ANTIGLAUCOMA PREPARATIONS AND MIOTICS [Concomitant]

REACTIONS (1)
  - BLOOD PRESSURE INCREASED [None]
